FAERS Safety Report 14750666 (Version 1)
Quarter: 2018Q2

REPORT INFORMATION
  Report Type: Spontaneous
  Country: US (occurrence: US)
  Receive Date: 20180412
  Receipt Date: 20180412
  Transmission Date: 20180711
  Serious: No
  Sender: FDA-Public Use
  Company Number: US-PFIZER INC-2018146714

PATIENT
  Age: 5 Year
  Sex: Female

DRUGS (1)
  1. EUCRISA [Suspect]
     Active Substance: CRISABOROLE
     Dosage: TWICE A DAY (APPLY TO AFFECTED AREAS)
     Dates: start: 201711, end: 201801

REACTIONS (3)
  - Drug ineffective [Unknown]
  - Application site pain [Unknown]
  - Erythema [Unknown]
